FAERS Safety Report 6405067-7 (Version None)
Quarter: 2009Q4

REPORT INFORMATION
  Report Type: 
  Country: None (occurrence: None)
  Receive Date: 20091019
  Receipt Date: 20091007
  Transmission Date: 20100525
  Serious: Yes (Hospitalization)
  Sender: FDA-Public Use
  Company Number: JP-ASTRAZENECA-2009SE18850

PATIENT
  Age: 70 Year
  Sex: Female

DRUGS (4)
  1. SEROQUEL [Suspect]
     Indication: SCHIZOPHRENIA
     Route: 048
     Dates: start: 20090801, end: 20090918
  2. SEROQUEL [Suspect]
     Route: 048
     Dates: start: 20090919
  3. SEROQUEL [Suspect]
     Route: 048
  4. BLONANSERIN [Concomitant]
     Route: 048
     Dates: start: 20090801

REACTIONS (1)
  - LEUKOPENIA [None]
